FAERS Safety Report 9353793 (Version 1)
Quarter: 2013Q2

REPORT INFORMATION
  Report Type: Spontaneous
  Country: US (occurrence: US)
  Receive Date: 20130618
  Receipt Date: 20130618
  Transmission Date: 20140414
  Serious: No
  Sender: FDA-Public Use
  Company Number: US-009507513-1306USA007711

PATIENT
  Sex: Female
  Weight: 52.15 kg

DRUGS (9)
  1. PEGINTRON [Suspect]
     Indication: HEPATITIS C
     Dosage: 80 MICROGRAM, QW, 80MCG/0.5ML, REDIPEN (80MCG 4 SYR/PK)
     Route: 058
  2. VICTRELIS [Suspect]
     Indication: HEPATITIS C
     Dosage: 800MG (4 CAPSULES) THREE TIMES A DAY (EVERY 7-9 HOURS)
     Route: 048
  3. RIBAPAK [Suspect]
     Indication: HEPATITIS C
     Dosage: 800/DAY
  4. XANAX [Concomitant]
  5. LASIX (FUROSEMIDE SODIUM) [Concomitant]
  6. AMLODIPINE [Concomitant]
  7. ATENOLOL [Concomitant]
  8. OXYCONTIN [Concomitant]
  9. KADIAN [Concomitant]

REACTIONS (2)
  - Fatigue [Unknown]
  - Nausea [Unknown]
